FAERS Safety Report 13916006 (Version 1)
Quarter: 2017Q3

REPORT INFORMATION
  Report Type: Report from Study
  Country: None (occurrence: US)
  Receive Date: 20170829
  Receipt Date: 20170829
  Transmission Date: 20171127
  Serious: Yes (Other)
  Sender: FDA-Public Use
  Company Number: US-ABBVIE-17K-163-2083659-00

PATIENT
  Sex: Female
  Weight: 99.43 kg

DRUGS (1)
  1. HUMIRA [Suspect]
     Active Substance: ADALIMUMAB
     Indication: PSORIASIS
     Route: 058
     Dates: start: 2013, end: 20170628

REACTIONS (4)
  - Muscular weakness [Recovered/Resolved]
  - Back pain [Not Recovered/Not Resolved]
  - Spinal column stenosis [Recovering/Resolving]
  - Coronary artery occlusion [Recovered/Resolved]

NARRATIVE: CASE EVENT DATE: 2014
